FAERS Safety Report 10997263 (Version 1)
Quarter: 2015Q2

REPORT INFORMATION
  Report Type: Spontaneous
  Country: US (occurrence: US)
  Receive Date: 20150408
  Receipt Date: 20150408
  Transmission Date: 20150821
  Serious: No
  Sender: FDA-Public Use
  Company Number: US-BANPHARM-20142480

PATIENT
  Age: 77 Year
  Sex: Male
  Weight: 86.17 kg

DRUGS (7)
  1. PRILOSEC [Concomitant]
     Active Substance: OMEPRAZOLE MAGNESIUM
     Dates: start: 2012
  2. CORGARD [Concomitant]
     Active Substance: NADOLOL
     Dates: start: 1985
  3. ECOTRIN [Concomitant]
     Active Substance: ASPIRIN
     Dates: start: 2011
  4. NAPROXEN SODIUM 220 MG [Suspect]
     Active Substance: NAPROXEN SODIUM
     Indication: HYPOAESTHESIA
     Dosage: 440 MG,
     Route: 048
     Dates: start: 20140317
  5. MONTELUKAST [Concomitant]
     Active Substance: MONTELUKAST SODIUM
     Dates: start: 201302
  6. PROCARDIA [Concomitant]
     Active Substance: NIFEDIPINE
     Dates: start: 1985
  7. HYDROCODONE [Concomitant]
     Active Substance: HYDROCODONE
     Dates: start: 2012

REACTIONS (3)
  - Erythema [Recovered/Resolved]
  - Incorrect dose administered [Unknown]
  - Drug ineffective for unapproved indication [Unknown]

NARRATIVE: CASE EVENT DATE: 20140317
